FAERS Safety Report 18650938 (Version 1)
Quarter: 2020Q4

REPORT INFORMATION
  Report Type: Spontaneous
  Country: US (occurrence: US)
  Receive Date: 20201223
  Receipt Date: 20201223
  Transmission Date: 20210114
  Serious: Yes (Hospitalization, Other)
  Sender: FDA-Public Use
  Company Number: US-JNJFOC-20201239159

PATIENT
  Age: 55 Year
  Sex: Female
  Weight: 136.51 kg

DRUGS (4)
  1. ZINC CREAM [Concomitant]
  2. ADEMPAS [Suspect]
     Active Substance: RIOCIGUAT
     Indication: PULMONARY ARTERIAL HYPERTENSION
     Dosage: 2.5 MG, TID
     Route: 048
  3. RIVAROXABAN [Suspect]
     Active Substance: RIVAROXABAN
     Indication: PRODUCT USED FOR UNKNOWN INDICATION
     Dosage: UNK
     Route: 048
  4. ADEMPAS [Suspect]
     Active Substance: RIOCIGUAT
     Indication: PULMONARY ARTERIAL HYPERTENSION
     Dosage: UNK
     Route: 048
     Dates: start: 20200207

REACTIONS (13)
  - Thrombosis [Unknown]
  - Fall [Unknown]
  - Spinal fracture [Unknown]
  - Gait disturbance [Unknown]
  - Headache [Unknown]
  - Oedema peripheral [Unknown]
  - Musculoskeletal disorder [Unknown]
  - Skin lesion [Unknown]
  - Pruritus [Unknown]
  - Erythema [Unknown]
  - Breath sounds abnormal [Unknown]
  - Depression [Unknown]
  - Dizziness [Unknown]
